FAERS Safety Report 7224805-7 (Version None)
Quarter: 2011Q1

REPORT INFORMATION
  Report Type: 
  Country: None (occurrence: None)
  Receive Date: 20110103
  Receipt Date: 20101222
  Transmission Date: 20110831
  Serious: Yes (Hospitalization)
  Sender: FDA-Public Use
  Company Number: 2010MA005498

PATIENT
  Age: 55 Year
  Sex: Male

DRUGS (8)
  1. CARDURA [Concomitant]
  2. NORVASC [Concomitant]
  3. LAMICTAL [Concomitant]
  4. TEGRETOL [Concomitant]
  5. ASPIRIN [Concomitant]
  6. DELORAZEPAM [Concomitant]
  7. RAMIPRIL [Suspect]
     Indication: HYPERTENSION
     Dosage: 2.5 MG, PO
     Route: 048
     Dates: start: 20101207, end: 20101214
  8. ASPIRIN [Concomitant]

REACTIONS (5)
  - PRURITUS [None]
  - SKIN BURNING SENSATION [None]
  - ARTHRALGIA [None]
  - MYALGIA [None]
  - ERYTHEMA [None]
